FAERS Safety Report 9275932 (Version 1)
Quarter: 2013Q2

REPORT INFORMATION
  Report Type: Spontaneous
  Country: US (occurrence: None)
  Receive Date: 20130502
  Receipt Date: 20130502
  Transmission Date: 20140414
  Serious: Yes (Life-Threatening, Hospitalization)
  Sender: FDA-Public Use
  Company Number: None

PATIENT
  Age: 51 Year
  Sex: Female
  Weight: 117.94 kg

DRUGS (1)
  1. HUMIRA [Suspect]
     Indication: RHEUMATOID ARTHRITIS
     Dosage: Q 2 WEEKS
     Route: 058
     Dates: start: 20130112, end: 20130323

REACTIONS (11)
  - Arthralgia [None]
  - Condition aggravated [None]
  - Insomnia [None]
  - Pericarditis [None]
  - Cardiac tamponade [None]
  - Multi-organ failure [None]
  - Dialysis [None]
  - Renal failure acute [None]
  - Rheumatoid factor positive [None]
  - Nausea [None]
  - Vomiting [None]
